FAERS Safety Report 8307901-2 (Version None)
Quarter: 2012Q2

REPORT INFORMATION
  Report Type: 
  Country: None (occurrence: None)
  Receive Date: 20120424
  Receipt Date: 20120306
  Transmission Date: 20120825
  Serious: No
  Sender: FDA-Public Use
  Company Number: US-PFIZER INC-2012097149

PATIENT
  Sex: Female

DRUGS (12)
  1. RELPAX [Suspect]
     Route: 065
  2. PROTONIX [Suspect]
     Route: 065
  3. ZOLOFT [Suspect]
     Indication: PRODUCT USED FOR UNKNOWN INDICATION
     Route: 065
  4. DIFLUCAN [Suspect]
     Route: 042
  5. EFFEXOR XR [Suspect]
     Route: 065
  6. NEURONTIN [Suspect]
     Route: 065
  7. VIBRAMYCIN [Suspect]
     Route: 065
  8. ZITHROMAX [Suspect]
     Route: 065
  9. DEPO-MEDROL [Suspect]
     Route: 065
  10. ZYRTEC [Suspect]
     Route: 065
  11. HYDROXYZINE PAMOATE [Suspect]
     Route: 065
  12. ANTIVERT [Suspect]
     Route: 065

REACTIONS (3)
  - BLOOD PRESSURE FLUCTUATION [None]
  - DEPRESSION [None]
  - BLOOD CHOLESTEROL ABNORMAL [None]
